FAERS Safety Report 14652089 (Version 1)
Quarter: 2018Q1

REPORT INFORMATION
  Report Type: Spontaneous
  Country: US (occurrence: US)
  Receive Date: 20180318
  Receipt Date: 20180318
  Transmission Date: 20180509
  Serious: No
  Sender: FDA-Public Use
  Company Number: US-JNJFOC-20180309841

PATIENT
  Sex: Male

DRUGS (5)
  1. LINEZOLID. [Suspect]
     Active Substance: LINEZOLID
     Indication: PRODUCT USED FOR UNKNOWN INDICATION
     Route: 048
     Dates: start: 20161206
  2. CYCLOSERINE. [Suspect]
     Active Substance: CYCLOSERINE
     Indication: PRODUCT USED FOR UNKNOWN INDICATION
     Dosage: 750 (UNITS UNSPECIFIED)
     Route: 048
     Dates: start: 20161122
  3. DELAMANID [Suspect]
     Active Substance: DELAMANID
     Indication: PRODUCT USED FOR UNKNOWN INDICATION
     Route: 065
     Dates: start: 20161206, end: 20170526
  4. LEVAQUIN [Suspect]
     Active Substance: LEVOFLOXACIN
     Indication: PRODUCT USED FOR UNKNOWN INDICATION
     Route: 048
     Dates: start: 20161109
  5. AMINOSALICYLIC ACID [Suspect]
     Active Substance: AMINOSALICYLIC ACID
     Indication: PRODUCT USED FOR UNKNOWN INDICATION
     Dosage: 800 (UNITS UNSPECIFIED)
     Route: 048
     Dates: start: 20161125

REACTIONS (1)
  - Pregnancy of partner [Unknown]
